FAERS Safety Report 5512120-9 (Version None)
Quarter: 2007Q4

REPORT INFORMATION
  Report Type: 
  Country: None (occurrence: None)
  Receive Date: 20071109
  Receipt Date: 20071105
  Transmission Date: 20080405
  Serious: Yes (Hospitalization, Other)
  Sender: FDA-Public Use
  Company Number: US-PFIZER INC-2007093338

PATIENT
  Sex: Male
  Weight: 57.2 kg

DRUGS (6)
  1. GEODON [Suspect]
     Indication: MOOD ALTERED
     Dosage: TEXT:20MG
  2. GEODON [Suspect]
  3. ARICEPT [Concomitant]
  4. PRAVASTATIN [Concomitant]
  5. FEXOFENADINE [Concomitant]
  6. DIGITEK [Concomitant]

REACTIONS (5)
  - DEPRESSION [None]
  - DYSARTHRIA [None]
  - FIBRIN D DIMER INCREASED [None]
  - PULMONARY EMBOLISM [None]
  - TRANSIENT ISCHAEMIC ATTACK [None]
